FAERS Safety Report 5044043-6 (Version None)
Quarter: 2006Q2

REPORT INFORMATION
  Report Type: 
  Country: None (occurrence: None)
  Receive Date: 20060601
  Receipt Date: 20060331
  Transmission Date: 20061013
  Serious: No
  Sender: FDA-Public Use
  Company Number: US200604000113

PATIENT

DRUGS (3)
  1. CYMBALTA [Suspect]
  2. PREGABALIN (PREGABALIN) [Concomitant]
  3. OXYCONTIN [Concomitant]

REACTIONS (1)
  - PAIN [None]
